FAERS Safety Report 5627825-9 (Version None)
Quarter: 2008Q1

REPORT INFORMATION
  Report Type: 
  Country: None (occurrence: None)
  Receive Date: 20080215
  Receipt Date: 20080206
  Transmission Date: 20080703
  Serious: Yes (Other)
  Sender: FDA-Public Use
  Company Number: US-BAYER-200810549BCC

PATIENT
  Age: 53 Year
  Sex: Female
  Weight: 60 kg

DRUGS (5)
  1. ASPIRIN [Suspect]
     Indication: NEOPLASM MALIGNANT
     Dosage: TOTAL DAILY DOSE: 650 MG  UNIT DOSE: 325 MG
     Route: 048
     Dates: start: 20040101
  2. ASCORBIC ACID [Concomitant]
  3. COQ10 [Concomitant]
  4. VITAMIN A [Concomitant]
  5. UNKNOWN CALCIUM + D [Concomitant]

REACTIONS (1)
  - HAEMOPTYSIS [None]
